FAERS Safety Report 15634364 (Version 1)
Quarter: 2018Q4

REPORT INFORMATION
  Report Type: Spontaneous
  Country: US (occurrence: US)
  Receive Date: 20181119
  Receipt Date: 20181119
  Transmission Date: 20190205
  Serious: No
  Sender: FDA-Public Use
  Company Number: US-PFIZER INC-2018460736

PATIENT
  Age: 70 Year
  Sex: Female
  Weight: 72.57 kg

DRUGS (2)
  1. ADVIL LIQUI-GELS [Suspect]
     Active Substance: IBUPROFEN
     Indication: PAIN
     Dosage: 200 MG, EVERY 6 HOURS (1 CAPSULE EVERY 6 HOURS)
     Route: 048
     Dates: start: 20181101
  2. ADVIL LIQUI-GELS [Suspect]
     Active Substance: IBUPROFEN
     Indication: INFLAMMATION
     Dosage: 400 MG, EVERY 6 HOURS (2 PILLS EVERY 6 HOURS)
     Route: 048
     Dates: start: 20181030, end: 2018

REACTIONS (3)
  - Nausea [Not Recovered/Not Resolved]
  - Feeling abnormal [Not Recovered/Not Resolved]
  - Product use issue [Unknown]

NARRATIVE: CASE EVENT DATE: 20181030
